FAERS Safety Report 21038554 (Version 3)
Quarter: 2022Q3

REPORT INFORMATION
  Report Type: Spontaneous
  Country: US (occurrence: US)
  Receive Date: 20220704
  Receipt Date: 20220909
  Transmission Date: 20221026
  Serious: No
  Sender: FDA-Public Use
  Company Number: US-BRISTOL-MYERS SQUIBB COMPANY-2022-054359

PATIENT
  Age: 49 Year
  Sex: Female

DRUGS (3)
  1. ORENCIA [Suspect]
     Active Substance: ABATACEPT
     Indication: Rheumatoid arthritis
     Route: 058
     Dates: start: 20220519
  2. ORENCIA [Suspect]
     Active Substance: ABATACEPT
     Dosage: DOSE : 125 MG/ML
     Route: 058
     Dates: start: 20220524
  3. ORENCIA [Suspect]
     Active Substance: ABATACEPT
     Route: 058
     Dates: start: 202204

REACTIONS (4)
  - Gait disturbance [Unknown]
  - Illness [Unknown]
  - Pain [Unknown]
  - Movement disorder [Unknown]
